FAERS Safety Report 21466730 (Version 1)
Quarter: 2022Q4

REPORT INFORMATION
  Report Type: Report from Study
  Country: US (occurrence: US)
  Receive Date: 20221017
  Receipt Date: 20221017
  Transmission Date: 20230113
  Serious: No
  Sender: FDA-Public Use
  Company Number: US-ABBVIE-4146106

PATIENT
  Sex: Female

DRUGS (8)
  1. RINVOQ [Suspect]
     Active Substance: UPADACITINIB
     Indication: Psoriatic arthropathy
     Dosage: FORM STRENGTH- 15 MG; THE EVENT ONSET DATE OF BACK AND NECK PAIN WAS IN 2022
     Route: 048
     Dates: start: 20220825
  2. PIROXICAM CAP 20MG [Concomitant]
     Indication: Product used for unknown indication
  3. OMEPRAZOLE CPD 40MG [Concomitant]
     Indication: Product used for unknown indication
  4. ESTRADIOL CRE 0.1MG/GM [Concomitant]
     Indication: Product used for unknown indication
  5. VITAMIN D (E CAP 50000UNIT) [Concomitant]
     Indication: Product used for unknown indication
  6. ACYCLOVIR [Concomitant]
     Active Substance: ACYCLOVIR
     Indication: Product used for unknown indication
  7. METHYLPREDNI TAB 4MG [Concomitant]
     Indication: Product used for unknown indication
  8. ASPIRIN ADULT TBE 81MG [Concomitant]
     Indication: Product used for unknown indication

REACTIONS (2)
  - Back pain [Not Recovered/Not Resolved]
  - Neck pain [Not Recovered/Not Resolved]
